FAERS Safety Report 4922042-X (Version None)
Quarter: 2006Q1

REPORT INFORMATION
  Report Type: 
  Country: None (occurrence: None)
  Receive Date: 20060224
  Receipt Date: 20051215
  Transmission Date: 20060701
  Serious: Yes (Other)
  Sender: FDA-Public Use
  Company Number: PHNU2005DE04175

PATIENT
  Age: 29 Year
  Sex: Female
  Weight: 59 kg

DRUGS (6)
  1. TEGRETOL [Suspect]
     Indication: SCHIZOPHRENIA
     Dosage: 200 MG/DAY
     Route: 048
     Dates: start: 19980101
  2. DIANE [Suspect]
  3. VALETTE [Suspect]
  4. SOLIAN [Suspect]
     Indication: SCHIZOPHRENIA
     Dosage: 100 MG/DAY
     Route: 048
     Dates: start: 19980101
  5. SOLIAN [Suspect]
     Dosage: 100 MG/DAY
     Route: 048
     Dates: start: 19980101
  6. BIPERIDEN HYDROCHLORIDE TAB [Suspect]
     Indication: SCHIZOPHRENIA
     Dosage: 2 MG/DAY
     Route: 048
     Dates: start: 19980101

REACTIONS (6)
  - ABORTION INDUCED [None]
  - AMENORRHOEA [None]
  - DRUG EFFECT DECREASED [None]
  - DRUG EXPOSURE DURING PREGNANCY [None]
  - DRUG INTERACTION [None]
  - UNINTENDED PREGNANCY [None]
